FAERS Safety Report 9756501 (Version 1)
Quarter: 2013Q4

REPORT INFORMATION
  Report Type: Spontaneous
  Country: US (occurrence: US)
  Receive Date: 20131213
  Receipt Date: 20131213
  Transmission Date: 20140711
  Serious: No
  Sender: FDA-Public Use
  Company Number: US-GLAXOSMITHKLINE-A1043624A

PATIENT
  Age: 38 Year
  Sex: Male

DRUGS (1)
  1. NICODERM CQ 21MG [Suspect]
     Indication: SMOKING CESSATION THERAPY

REACTIONS (5)
  - Discomfort [Unknown]
  - Tension [Unknown]
  - Drug ineffective [Unknown]
  - Withdrawal syndrome [Unknown]
  - Product quality issue [Unknown]
